FAERS Safety Report 4647731-6 (Version None)
Quarter: 2005Q2

REPORT INFORMATION
  Report Type: 
  Country: None (occurrence: None)
  Receive Date: 20050406
  Receipt Date: 20050323
  Transmission Date: 20051028
  Serious: Yes (Hospitalization)
  Sender: FDA-Public Use
  Company Number: 2005-00631

PATIENT

DRUGS (1)
  1. IMMUCYST (BCG - IT (CONNAUGHT)), AVENTIS PASTEUR LTD. [Suspect]
     Indication: BLADDER CANCER RECURRENT
     Dosage: (81.0 MG)  I.VES. BLADDER
     Route: 043

REACTIONS (1)
  - EPIDIDYMITIS [None]
